FAERS Safety Report 5343386-6 (Version None)
Quarter: 2007Q2

REPORT INFORMATION
  Report Type: 
  Country: None (occurrence: None)
  Receive Date: 20070502
  Receipt Date: 20060411
  Transmission Date: 20071010
  Serious: Yes (Other)
  Sender: FDA-Public Use
  Company Number: US-2006-002765

PATIENT
  Age: 72 Year
  Sex: Male

DRUGS (1)
  1. REFLUDAN [Suspect]
     Dosage: 36-40 HOUR INFUSION, INTRAVENOUS
     Route: 042
     Dates: start: 20060205, end: 20060206

REACTIONS (1)
  - GASTROINTESTINAL HAEMORRHAGE [None]
